FAERS Safety Report 22198680 (Version 1)
Quarter: 2023Q2

REPORT INFORMATION
  Report Type: Report from Study
  Country: US (occurrence: None)
  Receive Date: 20230411
  Receipt Date: 20230411
  Transmission Date: 20230722
  Serious: Yes (Hospitalization)
  Sender: FDA-Public Use
  Company Number: US-Eisai Medical Research-EC-2023-137853

PATIENT
  Age: 58 Year
  Sex: Female
  Weight: 72.72 kg

DRUGS (10)
  1. LENVIMA [Suspect]
     Active Substance: LENVATINIB
     Indication: Uterine cancer
     Route: 048
     Dates: start: 20221202, end: 20230315
  2. LENVIMA [Suspect]
     Active Substance: LENVATINIB
     Indication: Endometrial cancer
     Route: 048
     Dates: start: 20230404
  3. PAXLOVID [Suspect]
     Active Substance: NIRMATRELVIR\RITONAVIR
     Indication: Product used for unknown indication
     Dosage: 150-100MG (FREQUENCY UNKNOWN)
     Route: 048
     Dates: start: 202301
  4. LISINOPRIL [Concomitant]
     Active Substance: LISINOPRIL
  5. MAGNESIUM OXIDE [Concomitant]
     Active Substance: MAGNESIUM OXIDE
  6. PROBIOTICS NOS [Concomitant]
     Active Substance: PROBIOTICS NOS
  7. TYLENOL [Concomitant]
     Active Substance: ACETAMINOPHEN
  8. LOPERAMIDE [Concomitant]
     Active Substance: LOPERAMIDE
  9. HERBALS [Concomitant]
     Active Substance: HERBALS
  10. NP THYROID [Concomitant]
     Active Substance: LEVOTHYROXINE\LIOTHYRONINE

REACTIONS (4)
  - Cholecystitis infective [Recovered/Resolved]
  - Asthenia [Unknown]
  - Arthralgia [Unknown]
  - Blood pressure decreased [Unknown]

NARRATIVE: CASE EVENT DATE: 20230101
